FAERS Safety Report 17770365 (Version 2)
Quarter: 2020Q2

REPORT INFORMATION
  Report Type: Spontaneous
  Country: MY (occurrence: MY)
  Receive Date: 20200512
  Receipt Date: 20200519
  Transmission Date: 20200714
  Serious: Yes (Death, Hospitalization)
  Sender: FDA-Public Use
  Company Number: MY-PFIZER INC-2020185302

PATIENT
  Age: 96 Year
  Sex: Male

DRUGS (2)
  1. AMLODIPINE BESILATE [Suspect]
     Active Substance: AMLODIPINE BESYLATE
     Indication: HYPERTENSION
     Dosage: UNK (UNSURE OF THE AMOUNT INGESTED)
     Route: 048
  2. BISOPROLOL [Suspect]
     Active Substance: BISOPROLOL
     Indication: HYPERTENSION
     Dosage: UNK (UNSURE OF THE AMOUNT INGESTED)
     Route: 048

REACTIONS (3)
  - Overdose [Fatal]
  - Dizziness [Unknown]
  - Dementia [Unknown]
